FAERS Safety Report 4423586-X (Version None)
Quarter: 2004Q3

REPORT INFORMATION
  Report Type: 
  Country: None (occurrence: None)
  Receive Date: 20040805
  Receipt Date: 20040723
  Transmission Date: 20050211
  Serious: No
  Sender: FDA-Public Use
  Company Number: 04P-056-0268126-00

PATIENT
  Sex: 0

DRUGS (1)
  1. DEPAKOTE [Suspect]
     Dosage: 1500 MG, 1 IN 1 D, PER ORAL
     Route: 048
     Dates: start: 20040101, end: 20040101

REACTIONS (2)
  - CEREBELLAR SYNDROME [None]
  - GAIT DISTURBANCE [None]
